FAERS Safety Report 5733717-7 (Version None)
Quarter: 2008Q2

REPORT INFORMATION
  Report Type: 
  Country: None (occurrence: None)
  Receive Date: 20080509
  Receipt Date: 20080430
  Transmission Date: 20081010
  Serious: Yes (Death)
  Sender: FDA-Public Use
  Company Number: FR-PFIZER INC-2008037895

PATIENT
  Sex: Male

DRUGS (1)
  1. SU-011,248 [Suspect]
     Route: 048
     Dates: start: 20060425, end: 20061002

REACTIONS (1)
  - DEATH [None]
